FAERS Safety Report 8948163 (Version 3)
Quarter: 2013Q1

REPORT INFORMATION
  Report Type: Spontaneous
  Country: US (occurrence: US)
  Receive Date: 20121204
  Receipt Date: 20130125
  Transmission Date: 20140127
  Serious: Yes (Other)
  Sender: FDA-Public Use
  Company Number: US-PFIZER INC-2012302081

PATIENT
  Age: 86 Year
  Sex: Female
  Weight: 68.48 kg

DRUGS (4)
  1. TIKOSYN [Suspect]
     Indication: ATRIAL FIBRILLATION
     Dosage: 0.25 MG, 2X/DAY
     Route: 048
     Dates: start: 2012, end: 20121129
  2. TIKOSYN [Suspect]
     Indication: HEART RATE INCREASED
     Dosage: UNK
  3. TIKOSYN [Suspect]
     Dosage: UNK
  4. SPIRONOLACTONE [Concomitant]
     Dosage: UNK

REACTIONS (4)
  - Heart rate increased [Unknown]
  - Drug ineffective [Unknown]
  - Hypertension [Unknown]
  - Malaise [Unknown]
